FAERS Safety Report 9608953 (Version 1)
Quarter: 2013Q4

REPORT INFORMATION
  Report Type: Spontaneous
  Country: CN (occurrence: None)
  Receive Date: 20131007
  Receipt Date: 20131007
  Transmission Date: 20140711
  Serious: Yes (Hospitalization)
  Sender: FDA-Public Use
  Company Number: ACET20130027

PATIENT
  Age: 11 Year
  Sex: Female

DRUGS (1)
  1. Q-PAP EXTRA STRENGTH [Suspect]
     Indication: NASOPHARYNGITIS
     Dates: start: 20110827

REACTIONS (3)
  - Acute hepatic failure [None]
  - Liver injury [None]
  - Hepatitis [None]
